FAERS Safety Report 4381933-1 (Version None)
Quarter: 2004Q2

REPORT INFORMATION
  Report Type: 
  Country: None (occurrence: None)
  Receive Date: 20040615
  Receipt Date: 20040528
  Transmission Date: 20050107
  Serious: Yes (Life-Threatening, Hospitalization)
  Sender: FDA-Public Use
  Company Number: DSA_24467_2004

PATIENT
  Age: 65 Year
  Sex: Male
  Weight: 50.9979 kg

DRUGS (12)
  1. ENALAPRIL MALEATE [Suspect]
     Indication: CARDIAC FAILURE
     Dosage: 5 MG BID PO
     Route: 048
     Dates: start: 20040322, end: 20040518
  2. TICLOPIDINE HYDROCHLORIDE [Suspect]
     Dosage: 200 MG Q DAY PO
     Route: 048
     Dates: start: 20040421, end: 20040518
  3. ALLOPURINOL [Suspect]
     Indication: HYPERURICAEMIA
     Dosage: 100 MG Q DAY PO
     Route: 048
     Dates: start: 20040429, end: 20040518
  4. MEXILETINE HYDROCHLORIDE [Suspect]
     Indication: VENTRICULAR TACHYCARDIA
     Dosage: 300 MG Q DAY PO
     Route: 048
     Dates: start: 20040406, end: 20040518
  5. ASPIRIN [Concomitant]
  6. FUROSEMIDE [Concomitant]
  7. CARVEDILOL [Concomitant]
  8. SPIRONOLACTONE [Concomitant]
  9. RABEPRAZOLE SODIUM [Concomitant]
  10. TEPRENONE [Concomitant]
  11. ANTIBIOTICS-RESISTANT LACTIC ACID BACTERIAE [Concomitant]
  12. WARFARIN POTASSIUM [Concomitant]

REACTIONS (20)
  - AGRANULOCYTOSIS [None]
  - BASOPHIL COUNT INCREASED [None]
  - BLOOD ALBUMIN DECREASED [None]
  - BLOOD CHLORIDE INCREASED [None]
  - BLOOD LACTATE DEHYDROGENASE INCREASED [None]
  - BLOOD PRESSURE DECREASED [None]
  - BLOOD PRESSURE SYSTOLIC INCREASED [None]
  - BLOOD URIC ACID INCREASED [None]
  - BODY TEMPERATURE DECREASED [None]
  - HAEMATOCRIT DECREASED [None]
  - HAEMOGLOBIN DECREASED [None]
  - INFECTION [None]
  - INTERSTITIAL LUNG DISEASE [None]
  - LYMPHOCYTE COUNT INCREASED [None]
  - MONOCYTE COUNT INCREASED [None]
  - PROTHROMBIN TIME SHORTENED [None]
  - PYREXIA [None]
  - RED BLOOD CELL COUNT DECREASED [None]
  - RENAL FAILURE [None]
  - WHITE BLOOD CELL COUNT DECREASED [None]
